FAERS Safety Report 26191954 (Version 2)
Quarter: 2025Q4

REPORT INFORMATION
  Report Type: Report from Study
  Country: US (occurrence: US)
  Receive Date: 20251223
  Receipt Date: 20251230
  Transmission Date: 20260118
  Serious: Yes (Other)
  Sender: JOHNSON AND JOHNSON
  Company Number: US-JNJFOC-20251224593

PATIENT
  Sex: Female

DRUGS (2)
  1. TREMFYA [Suspect]
     Active Substance: GUSELKUMAB
     Indication: Product used for unknown indication
  2. TREMFYA [Suspect]
     Active Substance: GUSELKUMAB

REACTIONS (11)
  - Immunodeficiency [Recovering/Resolving]
  - Neoplasm malignant [Unknown]
  - Necrotising fasciitis [Unknown]
  - Sepsis [Unknown]
  - Crohn^s disease [Recovering/Resolving]
  - Diarrhoea [Unknown]
  - Bacterial infection [Unknown]
  - Weight decreased [Recovering/Resolving]
  - Fistula [Recovering/Resolving]
  - Illness [Unknown]
  - Product dose omission issue [Unknown]

NARRATIVE: CASE EVENT DATE: 20250601
